FAERS Safety Report 7365634-3 (Version None)
Quarter: 2011Q1

REPORT INFORMATION
  Report Type: 
  Country: None (occurrence: None)
  Receive Date: 20110322
  Receipt Date: 20110316
  Transmission Date: 20110831
  Serious: Yes (Other)
  Sender: FDA-Public Use
  Company Number: US-TEVA-271865USA

PATIENT
  Sex: Female

DRUGS (1)
  1. COPAXONE [Suspect]
     Indication: MULTIPLE SCLEROSIS
     Route: 058
     Dates: start: 20001121

REACTIONS (6)
  - INJECTION SITE INDURATION [None]
  - SKIN DISORDER [None]
  - ANAPHYLACTIC SHOCK [None]
  - PALLOR [None]
  - VISUAL IMPAIRMENT [None]
  - HYPOTENSION [None]
